FAERS Safety Report 17910883 (Version 1)
Quarter: 2020Q2

REPORT INFORMATION
  Report Type: Spontaneous
  Country: ES (occurrence: ES)
  Receive Date: 20200618
  Receipt Date: 20200618
  Transmission Date: 20200714
  Serious: Yes (Other)
  Sender: FDA-Public Use
  Company Number: ES-TEVA-2020-ES-1788039

PATIENT
  Age: 42 Year
  Sex: Female

DRUGS (2)
  1. KEVZARA [Suspect]
     Active Substance: SARILUMAB
     Indication: POLYMYALGIA RHEUMATICA
     Route: 048
     Dates: start: 20181207
  2. LEFLUNOMIDA 20 MG 30 COMPRIMIDOS [Suspect]
     Active Substance: LEFLUNOMIDE
     Indication: POLYMYALGIA RHEUMATICA
     Dates: start: 20181207

REACTIONS (3)
  - Leukopenia [Unknown]
  - Thrombocytopenia [Unknown]
  - Parathyroid hyperplasia [Unknown]

NARRATIVE: CASE EVENT DATE: 20200601
